FAERS Safety Report 8234803-2 (Version None)
Quarter: 2012Q1

REPORT INFORMATION
  Report Type: 
  Country: None (occurrence: None)
  Receive Date: 20120322
  Receipt Date: 20120307
  Transmission Date: 20120608
  Serious: Yes (Hospitalization, Disabling, Other)
  Sender: FDA-Public Use
  Company Number: 2012MPI00088

PATIENT
  Age: 37 Year
  Sex: Female

DRUGS (7)
  1. LOPERAMIDE [Concomitant]
  2. CASPOFUNGIN ACETATE [Concomitant]
  3. GANCICLOVIR [Concomitant]
  4. OMEPRAZOLE [Concomitant]
  5. PREDNISOLONE ACETATE [Concomitant]
  6. LENOGRASTIM [Concomitant]
  7. BRENTUXIMAB VEDOTIN (BRENTUXIMAB VEDOTIN) INJECTION [Suspect]
     Indication: HODGKIN'S DISEASE RECURRENT
     Dosage: 100 MG, QCYCLE, INTRAVENOUS
     Route: 042
     Dates: start: 20111202

REACTIONS (8)
  - LUNG NEOPLASM [None]
  - LOWER RESPIRATORY TRACT INFECTION [None]
  - PSEUDOMONAL SEPSIS [None]
  - BRONCHOPLEURAL FISTULA [None]
  - HYDROPNEUMOTHORAX [None]
  - LUNG CONSOLIDATION [None]
  - CYTOMEGALOVIRUS INFECTION [None]
  - EMPYEMA [None]
